FAERS Safety Report 9729464 (Version 1)
Quarter: 2013Q4

REPORT INFORMATION
  Report Type: Spontaneous
  Country: US (occurrence: US)
  Receive Date: 20131204
  Receipt Date: 20131204
  Transmission Date: 20140711
  Serious: No
  Sender: FDA-Public Use
  Company Number: US-GILEAD-2009-0021502

PATIENT
  Sex: Male
  Weight: 84.37 kg

DRUGS (8)
  1. LETAIRIS [Suspect]
     Indication: PULMONARY ARTERIAL HYPERTENSION
     Route: 048
     Dates: start: 20090225
  2. METOPROLOL SUCC ER [Concomitant]
  3. ADVAIR [Concomitant]
  4. SPIRIVA [Concomitant]
  5. XOPENEX [Concomitant]
  6. ZETIA [Concomitant]
  7. ERYTHROMYCIN [Concomitant]
  8. BUPROPION HCL ER [Concomitant]

REACTIONS (1)
  - Pneumonia [Unknown]
